FAERS Safety Report 7488478-0 (Version None)
Quarter: 2011Q2

REPORT INFORMATION
  Report Type: 
  Country: None (occurrence: None)
  Receive Date: 20110518
  Receipt Date: 20110513
  Transmission Date: 20111010
  Serious: Yes (Death)
  Sender: FDA-Public Use
  Company Number: LY-SANOFI-AVENTIS-2011SA029880

PATIENT
  Age: 76 Year
  Sex: Male

DRUGS (4)
  1. CAPTOPRIL [Concomitant]
     Dates: end: 20110213
  2. IRBESARTAN [Concomitant]
     Route: 048
     Dates: end: 20110213
  3. ASPEGIC 325 [Concomitant]
     Route: 048
     Dates: end: 20110213
  4. PLAVIX [Suspect]
     Indication: ISCHAEMIC STROKE
     Route: 048
     Dates: start: 20101101, end: 20110213

REACTIONS (1)
  - HEPATIC NEOPLASM MALIGNANT [None]
